FAERS Safety Report 23813568 (Version 2)
Quarter: 2024Q2

REPORT INFORMATION
  Report Type: Report from Study
  Country: US (occurrence: US)
  Receive Date: 20240503
  Receipt Date: 20240603
  Transmission Date: 20240716
  Serious: Yes (Other)
  Sender: FDA-Public Use
  Company Number: US-BAYER-2024A065536

PATIENT
  Sex: Female

DRUGS (3)
  1. ASPIRIN [Suspect]
     Active Substance: ASPIRIN
     Indication: Gynaecological disorder prophylaxis
  2. ACETAMINOPHEN [Suspect]
     Active Substance: ACETAMINOPHEN
  3. IBUPROFEN [Suspect]
     Active Substance: IBUPROFEN

REACTIONS (4)
  - Angioedema [None]
  - Maternal exposure during pregnancy [None]
  - Contraindicated product administered [None]
  - Off label use [None]
